FAERS Safety Report 7775569-X (Version None)
Quarter: 2011Q3

REPORT INFORMATION
  Report Type: 
  Country: None (occurrence: None)
  Receive Date: 20110923
  Receipt Date: 20110916
  Transmission Date: 20111222
  Serious: Yes (Hospitalization)
  Sender: FDA-Public Use
  Company Number: DE-ABBOTT-11P-062-0726088-00

PATIENT
  Sex: Male

DRUGS (4)
  1. CORTISONE ACETATE [Concomitant]
     Indication: PRODUCT USED FOR UNKNOWN INDICATION
  2. LEFLUNOMIDE [Concomitant]
     Indication: PRODUCT USED FOR UNKNOWN INDICATION
     Dates: end: 20110701
  3. HUMIRA [Suspect]
     Indication: RHEUMATOID ARTHRITIS
     Route: 058
     Dates: start: 20110203, end: 20110801
  4. HUMIRA [Suspect]
     Route: 058
     Dates: start: 20110916

REACTIONS (6)
  - CYST [None]
  - PAIN IN EXTREMITY [None]
  - INJECTION SITE REACTION [None]
  - INJECTION SITE ABSCESS [None]
  - ARTHROPATHY [None]
  - OEDEMA PERIPHERAL [None]
